FAERS Safety Report 19709807 (Version 2)
Quarter: 2021Q3

REPORT INFORMATION
  Report Type: Spontaneous
  Country: US (occurrence: US)
  Receive Date: 20210817
  Receipt Date: 20210825
  Transmission Date: 20211014
  Serious: Yes (Hospitalization, Other)
  Sender: FDA-Public Use
  Company Number: US-PFIZER INC-202101048452

PATIENT
  Age: 72 Year
  Sex: Female
  Weight: 54.42 kg

DRUGS (4)
  1. METHOTREXATE SODIUM. [Suspect]
     Active Substance: METHOTREXATE SODIUM
     Dosage: UNK
     Route: 065
  2. TOZINAMERAN. [Suspect]
     Active Substance: TOZINAMERAN
     Indication: COVID-19 IMMUNISATION
     Dosage: DOSE NUMBER UNKNOWN, SINGLE
     Route: 065
  3. ENBREL [Interacting]
     Active Substance: ETANERCEPT
     Indication: RHEUMATOID ARTHRITIS
  4. ENBREL [Interacting]
     Active Substance: ETANERCEPT
     Indication: POLYARTHRITIS
     Dosage: UNK UNK, QWK
     Route: 065

REACTIONS (9)
  - Therapeutic product effect decreased [Unknown]
  - Dyspnoea [Unknown]
  - Presyncope [Unknown]
  - Rheumatoid arthritis [Recovering/Resolving]
  - Myocardial infarction [Unknown]
  - Blood blister [Recovering/Resolving]
  - Somnolence [Not Recovered/Not Resolved]
  - Fatigue [Unknown]
  - Drug interaction [Unknown]
